FAERS Safety Report 7526557-X (Version None)
Quarter: 2011Q2

REPORT INFORMATION
  Report Type: 
  Country: None (occurrence: None)
  Receive Date: 20110606
  Receipt Date: 20110523
  Transmission Date: 20111010
  Serious: Yes (Hospitalization, Other)
  Sender: FDA-Public Use
  Company Number: US-ELI_LILLY_AND_COMPANY-US201007001283

PATIENT
  Sex: Female

DRUGS (24)
  1. CALCIUM CARBONATE [Concomitant]
     Dosage: 1200 MG, DAILY (1/D)
  2. FERROUS SULFATE TAB [Concomitant]
     Dosage: 325 MG, DAILY (1/D)
  3. VALIUM [Concomitant]
     Dosage: 5 MG, 2/D
  4. LASIX [Concomitant]
     Dosage: 40 MG, DAILY (1/D)
  5. PRILOSEC [Concomitant]
     Dosage: 20 MG, DAILY (1/D)
  6. LOVAZA [Concomitant]
     Indication: HYPERTENSION
     Dosage: UNK, DAILY (1/D)
  7. FORTEO [Suspect]
     Indication: OSTEOPOROSIS
     Dosage: 20 UG, DAILY (1/D)
     Route: 065
     Dates: start: 20090801
  8. FORTEO [Suspect]
     Dosage: 20 UG, DAILY (1/D)
     Route: 065
  9. VITAMIN D [Concomitant]
     Dosage: 50000 U, WEEKLY (1/W)
  10. CARAFATE [Concomitant]
     Indication: GASTRIC ULCER
     Dosage: 1 G, 3/D
  11. NITROGLYCERIN [Concomitant]
     Dosage: UNK, AS NEEDED
  12. FORTEO [Suspect]
     Dosage: 20 UG, QD
     Route: 065
  13. FORTEO [Suspect]
     Dosage: 20 UG, QD
     Route: 065
  14. POTASSIUM                          /00031402/ [Concomitant]
     Dosage: 10 MEQ, DAILY (1/D)
  15. PRAVACHOL [Concomitant]
     Indication: BLOOD CHOLESTEROL
     Dosage: 40 MG, EACH EVENING
  16. PHENERGAN HCL [Concomitant]
     Dosage: 25 MG, EACH MORNING
  17. THYROID THERAPY [Concomitant]
  18. SYNTHROID [Concomitant]
     Dosage: 50 UG, DAILY (1/D)
  19. ANTIHYPERTENSIVES [Concomitant]
  20. MIRAPEX [Concomitant]
     Dosage: UNK, EACH EVENING
  21. ASPIRIN [Concomitant]
     Dosage: 81 MG, DAILY (1/D)
  22. SPIRIVA [Concomitant]
     Dosage: UNK, DAILY (1/D)
  23. LAMICTAL [Concomitant]
     Dosage: 150 MG, DAILY (1/D)
  24. CARDIAC THERAPY [Concomitant]

REACTIONS (29)
  - GASTROENTERITIS VIRAL [None]
  - EMPHYSEMA [None]
  - LUNG INFECTION [None]
  - BACK PAIN [None]
  - GROIN PAIN [None]
  - SYSTEMIC LUPUS ERYTHEMATOSUS [None]
  - INJECTION SITE HAEMORRHAGE [None]
  - BACTERIAL INFECTION [None]
  - VARICOSE VEIN [None]
  - BODY HEIGHT DECREASED [None]
  - RECTAL HAEMORRHAGE [None]
  - OXYGEN SATURATION DECREASED [None]
  - ORAL FUNGAL INFECTION [None]
  - NERVE COMPRESSION [None]
  - PAIN IN EXTREMITY [None]
  - CARDIAC DISORDER [None]
  - FALL [None]
  - LUNG DISORDER [None]
  - MUSCULAR WEAKNESS [None]
  - ERYTHEMA [None]
  - ARTHRALGIA [None]
  - BLOOD PRESSURE DECREASED [None]
  - LABILE BLOOD PRESSURE [None]
  - ABDOMINAL PAIN UPPER [None]
  - DIARRHOEA [None]
  - CHRONIC OBSTRUCTIVE PULMONARY DISEASE [None]
  - MALAISE [None]
  - DYSPNOEA [None]
  - INJECTION SITE PAIN [None]
